FAERS Safety Report 16477491 (Version 1)
Quarter: 2019Q2

REPORT INFORMATION
  Report Type: Report from Study
  Country: CA (occurrence: CA)
  Receive Date: 20190626
  Receipt Date: 20190626
  Transmission Date: 20190711
  Serious: Yes (Other)
  Sender: FDA-Public Use
  Company Number: CA-ROCHE-2186922

PATIENT
  Age: 45 Year
  Sex: Female

DRUGS (12)
  1. METONIA [Concomitant]
     Active Substance: METOCLOPRAMIDE
  2. ACTEMRA [Suspect]
     Active Substance: TOCILIZUMAB
     Indication: RHEUMATOID ARTHRITIS
     Route: 042
     Dates: start: 20190411, end: 20190411
  3. CITALOPRAM [Concomitant]
     Active Substance: CITALOPRAM HYDROBROMIDE
  4. RIZATRIPTAN. [Concomitant]
     Active Substance: RIZATRIPTAN
  5. ACTEMRA [Suspect]
     Active Substance: TOCILIZUMAB
     Indication: RHEUMATOID ARTHRITIS
     Dosage: ONGOING: YES
     Route: 058
     Dates: start: 20180712, end: 201809
  6. REACTINE [CETIRIZINE HYDROCHLORIDE] [Concomitant]
     Active Substance: CETIRIZINE HYDROCHLORIDE
  7. ORENCIA [Concomitant]
     Active Substance: ABATACEPT
  8. LORATADINA [Concomitant]
     Active Substance: LORATADINE
  9. ATIVAN [Concomitant]
     Active Substance: LORAZEPAM
  10. TRAMADOL. [Concomitant]
     Active Substance: TRAMADOL
  11. ACTEMRA [Suspect]
     Active Substance: TOCILIZUMAB
     Dosage: 20MG/ML FOR IV INFUSION, IV OVER 60 MINUTES
     Route: 042
     Dates: start: 20190412
  12. FLOVENT [Concomitant]
     Active Substance: FLUTICASONE PROPIONATE

REACTIONS (14)
  - Back pain [Not Recovered/Not Resolved]
  - Fatigue [Unknown]
  - Chest pain [Not Recovered/Not Resolved]
  - Vision blurred [Unknown]
  - Feeding disorder [Not Recovered/Not Resolved]
  - Abdominal discomfort [Not Recovered/Not Resolved]
  - Cold sweat [Unknown]
  - Anxiety [Unknown]
  - Vomiting [Not Recovered/Not Resolved]
  - Flushing [Unknown]
  - Asthenia [Unknown]
  - Abdominal pain upper [Not Recovered/Not Resolved]
  - Hypoaesthesia [Unknown]
  - Gastrointestinal haemorrhage [Unknown]

NARRATIVE: CASE EVENT DATE: 201809
